FAERS Safety Report 9531122 (Version 1)
Quarter: 2013Q2

REPORT INFORMATION
  Report Type: Spontaneous
  Country: US (occurrence: None)
  Receive Date: 20130418
  Receipt Date: 20130418
  Transmission Date: 20140414
  Serious: Yes (Other)
  Sender: FDA-Public Use
  Company Number: 1301USA001944

PATIENT
  Age: 21 Year
  Sex: Female

DRUGS (2)
  1. SINGULAIR (MONTELUKAST SODIUM) TABLET [Suspect]
     Indication: ASTHMA
     Route: 048
  2. LORATIDINE [Suspect]
     Indication: URTICARIA CHRONIC
     Route: 048

REACTIONS (18)
  - Intentional overdose [None]
  - Condition aggravated [None]
  - Depersonalisation [None]
  - Depression [None]
  - Dissociation [None]
  - Dizziness [None]
  - Drug interaction [None]
  - Burning sensation [None]
  - Hypersensitivity [None]
  - Visual acuity reduced [None]
  - Muscle spasms [None]
  - Nervous system disorder [None]
  - Paraesthesia [None]
  - Prescribed overdose [None]
  - Somnolence [None]
  - Tinnitus [None]
  - Urticaria [None]
  - Hallucination [None]
